FAERS Safety Report 21054904 (Version 2)
Quarter: 2022Q3

REPORT INFORMATION
  Report Type: Report from Study
  Country: US (occurrence: None)
  Receive Date: 20220707
  Receipt Date: 20220715
  Transmission Date: 20221026
  Serious: Yes (Hospitalization)
  Sender: FDA-Public Use
  Company Number: US-ROCHE-3127375

PATIENT
  Age: 78 Year
  Sex: Male
  Weight: 74.8 kg

DRUGS (8)
  1. TOCILIZUMAB [Suspect]
     Active Substance: TOCILIZUMAB
     Indication: Malignant melanoma
     Route: 042
     Dates: start: 20220516, end: 20220516
  2. NIVOLUMAB [Suspect]
     Active Substance: NIVOLUMAB
     Indication: Malignant melanoma
     Route: 042
     Dates: start: 20220516, end: 20220606
  3. IPILIMUMAB [Suspect]
     Active Substance: IPILIMUMAB
     Indication: Malignant melanoma
     Route: 042
     Dates: start: 20220516, end: 20220606
  4. SOLU-MEDROL [Concomitant]
     Active Substance: METHYLPREDNISOLONE SODIUM SUCCINATE
     Dosage: ON 26/JUN/2022, DOSE INCREASED TO 150 MG/DAY
     Dates: start: 20220625
  5. SOLU-MEDROL [Concomitant]
     Active Substance: METHYLPREDNISOLONE SODIUM SUCCINATE
  6. ALBUTEROL [Concomitant]
     Active Substance: ALBUTEROL
     Dosage: MEDICATION GIVEN WHILE AWAKE
     Dates: start: 20220626
  7. ALBUTEROL [Concomitant]
     Active Substance: ALBUTEROL
  8. IPRATROPIUM [Concomitant]
     Active Substance: IPRATROPIUM
     Dosage: MEDICATION GIVEN WHILE AWAKE
     Dates: start: 20220626

REACTIONS (1)
  - Pneumonitis [Recovered/Resolved with Sequelae]

NARRATIVE: CASE EVENT DATE: 20220624
